FAERS Safety Report 10064601 (Version 1)
Quarter: 2014Q2

REPORT INFORMATION
  Report Type: Spontaneous
  Country: US (occurrence: None)
  Receive Date: 20140407
  Receipt Date: 20140407
  Transmission Date: 20141212
  Serious: Yes (Other)
  Sender: FDA-Public Use
  Company Number: None

PATIENT
  Age: 55 Year
  Sex: Female
  Weight: 113.4 kg

DRUGS (1)
  1. LEVOFLOXACIN [Suspect]
     Indication: BRONCHITIS
     Dosage: TAKEN BY MOUTH
     Dates: start: 20140325, end: 20140403

REACTIONS (3)
  - Musculoskeletal pain [None]
  - Pain in extremity [None]
  - Joint crepitation [None]
